FAERS Safety Report 4340909-0 (Version None)
Quarter: 2004Q2

REPORT INFORMATION
  Report Type: 
  Country: None (occurrence: None)
  Receive Date: 20040413
  Receipt Date: 20040407
  Transmission Date: 20050107
  Serious: Yes (Hospitalization, Disabling)
  Sender: FDA-Public Use
  Company Number: 2004006229

PATIENT
  Age: 59 Year
  Sex: Male

DRUGS (4)
  1. VFEND [Suspect]
     Indication: LUNG INFILTRATION
     Dosage: 400 MG (BID), ORAL
     Route: 048
     Dates: start: 20031218, end: 20040128
  2. ACYCLOVIR [Concomitant]
  3. MEROPENEM (MEROPENEM) [Concomitant]
  4. VANCOMYCIN [Concomitant]

REACTIONS (7)
  - APATHY [None]
  - DEMENTIA [None]
  - DEPRESSED LEVEL OF CONSCIOUSNESS [None]
  - HEADACHE [None]
  - MENTAL DISORDER DUE TO A GENERAL MEDICAL CONDITION [None]
  - STUPOR [None]
  - VISUAL DISTURBANCE [None]
